FAERS Safety Report 5554921-7 (Version None)
Quarter: 2007Q4

REPORT INFORMATION
  Report Type: 
  Country: None (occurrence: None)
  Receive Date: 20071213
  Receipt Date: 20071203
  Transmission Date: 20080405
  Serious: No
  Sender: FDA-Public Use
  Company Number: US-BAXTER-2007BH008483

PATIENT
  Age: 36 Year
  Sex: Male
  Weight: 79 kg

DRUGS (13)
  1. DIANEAL [Suspect]
     Indication: PERITONEAL DIALYSIS
     Route: 033
     Dates: end: 20070901
  2. RENAGEL [Concomitant]
     Indication: DRUG USE FOR UNKNOWN INDICATION
     Route: 065
  3. EPOGEN [Concomitant]
     Indication: DRUG USE FOR UNKNOWN INDICATION
     Route: 065
  4. AMIODARONE HCL [Concomitant]
     Indication: DRUG USE FOR UNKNOWN INDICATION
     Route: 065
  5. METOPROLOL [Concomitant]
     Indication: DRUG USE FOR UNKNOWN INDICATION
     Route: 065
  6. EPOGEN [Concomitant]
     Indication: ANAEMIA
     Route: 058
     Dates: start: 20070621
  7. RESTORIL [Concomitant]
     Indication: INSOMNIA
     Dosage: DOSE UNIT:UNKNOWN
     Route: 048
     Dates: start: 20070621
  8. CYTAMEN [Concomitant]
     Route: 048
     Dates: start: 20070621
  9. RENAGEL [Concomitant]
     Indication: HYPERPHOSPHATAEMIA
     Route: 048
     Dates: start: 20070622
  10. CORDARONE [Concomitant]
     Route: 048
     Dates: start: 20070716
  11. PROCHLORPERAZINE [Concomitant]
     Route: 048
     Dates: start: 20070716
  12. TOPROL-XL [Concomitant]
     Route: 048
     Dates: start: 20070716
  13. POTASSIUM CHLORIDE [Concomitant]
     Indication: DRUG USE FOR UNKNOWN INDICATION
     Route: 065

REACTIONS (1)
  - BLOOD POTASSIUM DECREASED [None]
